FAERS Safety Report 11632497 (Version 3)
Quarter: 2015Q4

REPORT INFORMATION
  Report Type: Spontaneous
  Country: US (occurrence: US)
  Receive Date: 20151015
  Receipt Date: 20151223
  Transmission Date: 20160304
  Serious: No
  Sender: FDA-Public Use
  Company Number: US-009507513-1510USA006614

PATIENT
  Age: 17 Year
  Sex: Female
  Weight: 53.97 kg

DRUGS (2)
  1. IBUPROFEN. [Concomitant]
     Active Substance: IBUPROFEN
     Dosage: UNK
  2. NEXPLANON [Suspect]
     Active Substance: ETONOGESTREL
     Indication: CONTRACEPTION
     Dosage: 1 IMPLANT/3 YAERS; IN HER LEFT ARM
     Route: 059
     Dates: start: 20150921

REACTIONS (7)
  - Somnolence [Unknown]
  - Diplopia [Unknown]
  - Menorrhagia [Unknown]
  - Diarrhoea [Unknown]
  - Dizziness [Unknown]
  - Chest pain [Unknown]
  - Headache [Unknown]

NARRATIVE: CASE EVENT DATE: 2015
